FAERS Safety Report 11157811 (Version 1)
Quarter: 2015Q2

REPORT INFORMATION
  Report Type: Spontaneous
  Country: DE (occurrence: None)
  Receive Date: 20150601
  Receipt Date: 20150601
  Transmission Date: 20150821
  Serious: Yes (Hospitalization)
  Sender: FDA-Public Use
  Company Number: DE-H14001-15-00811

PATIENT
  Age: 75 Year
  Sex: Male

DRUGS (5)
  1. OXALIPLATIN (OXALIPLATIN) (UNKNOWN) (OXALIPLATIN) [Suspect]
     Active Substance: OXALIPLATIN
     Indication: RECTAL ADENOCARCINOMA
     Dosage: 80 MG/M2, BIMONTHLY REGIMEN; ON DAY 1
     Route: 042
  2. 5-FLUOROURACIL [Suspect]
     Active Substance: FLUOROURACIL
     Indication: RECTAL ADENOCARCINOMA
     Dosage: 2400 MG/M2, ON DAY 1; FOR 46 HOURS
     Route: 041
  3. CALCIUM CARBONATE (CALCIUM CARBONATE) (UNKNOWN) (CALCIUM CARBONATE) [Concomitant]
     Active Substance: CALCIUM CARBONATE
  4. CHOLECALCIFEROL (COLECALCIFEROL) (UNKNOWN) (COLECALCIFEROL) [Concomitant]
  5. LEUCOVORIN (CALCIUM FOLINATE) (UNKNOWN) (CALCIUM FOLINATE) [Suspect]
     Active Substance: LEUCOVORIN
     Indication: RECTAL ADENOCARCINOMA
     Dosage: 400 MG/M2, BIMONTHLY REGIMEN; ON DAY 1
     Route: 042

REACTIONS (6)
  - Toxicity to various agents [None]
  - Hypochromic anaemia [None]
  - Acute kidney injury [None]
  - Pyrexia [None]
  - Hypersensitivity vasculitis [None]
  - Glomerulonephritis acute [None]
